FAERS Safety Report 24279010 (Version 1)
Quarter: 2024Q3

REPORT INFORMATION
  Report Type: Spontaneous
  Country: DE (occurrence: DE)
  Receive Date: 20240903
  Receipt Date: 20240903
  Transmission Date: 20241016
  Serious: Yes (Other)
  Sender: PFIZER
  Company Number: DE-EMBRYOTOX-202305424

PATIENT
  Sex: Male
  Weight: 2.535 kg

DRUGS (6)
  1. EPIRUBICIN HYDROCHLORIDE [Suspect]
     Active Substance: EPIRUBICIN HYDROCHLORIDE
     Indication: Breast cancer female
     Dosage: 102 MG PER APPLICATION
     Route: 064
     Dates: start: 20230704, end: 20230725
  2. AKYNZEO (NETUPITANT\PALONOSETRON HYDROCHLORIDE) [Suspect]
     Active Substance: NETUPITANT\PALONOSETRON HYDROCHLORIDE
     Indication: Prophylaxis of nausea and vomiting
     Dosage: 0.5 [MG/D ] / 300 [MG/D ], EVERY 3 WEEKS
     Route: 064
     Dates: start: 20230704, end: 20230725
  3. MESNA [Suspect]
     Active Substance: MESNA
     Indication: Chemotherapy side effect prophylaxis
     Dosage: 400 MG, EVERY 3 WEEKS
     Route: 064
     Dates: start: 20230704, end: 20230725
  4. CYCLOPHOSPHAMIDE [Suspect]
     Active Substance: CYCLOPHOSPHAMIDE
     Indication: Breast cancer female
     Dosage: 1082 MG PER APPLICATION
     Route: 064
     Dates: start: 20230704, end: 20230725
  5. DEXAMETHASONE [Suspect]
     Active Substance: DEXAMETHASONE
     Indication: Prophylaxis of nausea and vomiting
     Dosage: 8 MG, EVERY 3 WEEKS
     Route: 064
     Dates: start: 20230704, end: 20230725
  6. PROTAPHANE [Concomitant]
     Active Substance: INSULIN HUMAN
     Indication: Gestational diabetes
     Dosage: 8 IU, 1X/DAY
     Route: 064
     Dates: start: 20230615, end: 20230811

REACTIONS (2)
  - Maternal exposure during pregnancy [Recovering/Resolving]
  - Small for dates baby [Recovering/Resolving]

NARRATIVE: CASE EVENT DATE: 20230801
